FAERS Safety Report 5484801-7 (Version None)
Quarter: 2007Q4

REPORT INFORMATION
  Report Type: 
  Country: None (occurrence: None)
  Receive Date: 20071012
  Receipt Date: 20071002
  Transmission Date: 20080405
  Serious: Yes (Other)
  Sender: FDA-Public Use
  Company Number: GB-PFIZER INC-2007083793

PATIENT
  Age: 47 Year
  Sex: Female
  Weight: 93 kg

DRUGS (9)
  1. CHAMPIX [Suspect]
     Indication: SMOKING CESSATION THERAPY
     Route: 048
     Dates: start: 20070705, end: 20070914
  2. AMITRIPTYLINE HCL [Concomitant]
     Dosage: DAILY DOSE:25MG-FREQ:DAILY
  3. CLIMAVAL [Concomitant]
     Dosage: DAILY DOSE:1MG-FREQ:DAILY
  4. CLOBETASOL PROPIONATE [Concomitant]
     Dosage: TEXT:0.05%
  5. DICONAL [Concomitant]
     Dosage: FREQ:DAILY
  6. IBUPROFEN [Concomitant]
  7. ORLISTAT [Concomitant]
  8. SENNA [Concomitant]
  9. TRAMADOL HCL [Concomitant]

REACTIONS (1)
  - ALOPECIA AREATA [None]
